FAERS Safety Report 15749631 (Version 1)
Quarter: 2018Q4

REPORT INFORMATION
  Report Type: Spontaneous
  Country: CA (occurrence: CA)
  Receive Date: 20181221
  Receipt Date: 20181221
  Transmission Date: 20190205
  Serious: Yes (Hospitalization, Other)
  Sender: FDA-Public Use
  Company Number: CA-AMGEN-CANSP2018180553

PATIENT
  Age: 71 Year
  Sex: Female

DRUGS (15)
  1. CARVEDILOL. [Concomitant]
     Active Substance: CARVEDILOL
     Indication: HYPERTENSION
     Dosage: 12.5 MG, BID
  2. SODIUM BICARBONATE. [Concomitant]
     Active Substance: SODIUM BICARBONATE
     Indication: CHRONIC KIDNEY DISEASE
     Dosage: 325 MG, QID
  3. ISOSORBIDE MONONITRATE. [Concomitant]
     Active Substance: ISOSORBIDE MONONITRATE
     Dosage: 60 MG, QAM (EVERY MORNING)
  4. ISOSORBIDE MONONITRATE. [Concomitant]
     Active Substance: ISOSORBIDE MONONITRATE
     Dosage: 120 MG QHS (AT BEDTIME)
  5. INSULIN LISPRO [Concomitant]
     Active Substance: INSULIN LISPRO
     Indication: DIABETES MELLITUS
     Dosage: UNK
  6. ESCITALOPRAM [Concomitant]
     Active Substance: ESCITALOPRAM OXALATE
     Indication: DEPRESSION
     Dosage: 10 MG, QD
  7. ARANESP [Suspect]
     Active Substance: DARBEPOETIN ALFA
     Indication: RENAL IMPAIRMENT
     Dosage: 60 MCG Q2WK
     Route: 065
     Dates: start: 201711, end: 201810
  8. LEVOTHYROXINE. [Concomitant]
     Active Substance: LEVOTHYROXINE
     Indication: HYPERTHYROIDISM
     Dosage: 100 MCG QD
  9. ARANESP [Suspect]
     Active Substance: DARBEPOETIN ALFA
     Indication: CHRONIC KIDNEY DISEASE
     Dosage: 60 MCG Q2WK
     Route: 065
     Dates: start: 201812
  10. AMLODIPINE [Concomitant]
     Active Substance: AMLODIPINE BESYLATE
     Indication: HYPERTENSION
     Dosage: 10 MG, QD
  11. PERINDOPRIL [Concomitant]
     Active Substance: PERINDOPRIL
     Indication: HYPERTENSION
     Dosage: 16 MG, QD
  12. TERAZOSIN [Concomitant]
     Active Substance: TERAZOSIN\TERAZOSIN HYDROCHLORIDE
     Indication: HYPERTENSION
     Dosage: 3 MG, BID
  13. REPAGLINIDE. [Concomitant]
     Active Substance: REPAGLINIDE
     Indication: DIABETES MELLITUS
     Dosage: 2.5 MG, BID
  14. ROSUVASTATIN. [Concomitant]
     Active Substance: ROSUVASTATIN
     Indication: HYPERLIPIDAEMIA
     Dosage: 10 MG, QD
  15. ACETYLSALICYLIC ACID [Concomitant]
     Active Substance: ASPIRIN
     Dosage: 81 MG, QD

REACTIONS (1)
  - Hospitalisation [Not Recovered/Not Resolved]

NARRATIVE: CASE EVENT DATE: 201812
